FAERS Safety Report 5149458-3 (Version None)
Quarter: 2006Q4

REPORT INFORMATION
  Report Type: 
  Country: None (occurrence: None)
  Receive Date: 20061113
  Receipt Date: 20060127
  Transmission Date: 20070319
  Serious: No
  Sender: FDA-Public Use
  Company Number: 434233

PATIENT
  Sex: Male

DRUGS (1)
  1. COREG [Suspect]
     Indication: DRUG USE FOR UNKNOWN INDICATION
     Route: 065

REACTIONS (1)
  - TINNITUS [None]
